FAERS Safety Report 9034492 (Version 1)
Quarter: 2013Q1

REPORT INFORMATION
  Report Type: Spontaneous
  Country: US (occurrence: None)
  Receive Date: 20130116
  Receipt Date: 20130116
  Transmission Date: 20140127
  Serious: Yes (Hospitalization, Other)
  Sender: FDA-Public Use
  Company Number: None

PATIENT
  Sex: Female
  Weight: 87.09 kg

DRUGS (1)
  1. MIDODRINE [Suspect]
     Route: 048
     Dates: start: 201209

REACTIONS (6)
  - Anxiety [None]
  - Pollakiuria [None]
  - Paranoia [None]
  - Fear [None]
  - Abnormal behaviour [None]
  - Thinking abnormal [None]
